FAERS Safety Report 4291543-2 (Version None)
Quarter: 2004Q1

REPORT INFORMATION
  Report Type: 
  Country: None (occurrence: None)
  Receive Date: 20040126
  Receipt Date: 20031023
  Transmission Date: 20041129
  Serious: No
  Sender: FDA-Public Use
  Company Number: USA030947386

PATIENT
  Age: 80 Year
  Sex: Female
  Weight: 55 kg

DRUGS (10)
  1. FORTEO [Suspect]
     Indication: OSTEOPOROSIS
     Dosage: 20 UG/DAY
     Dates: start: 20030820
  2. PREDNISONE [Concomitant]
  3. PRILOSEC [Concomitant]
  4. DYAZIDE [Concomitant]
  5. VASOTEC [Concomitant]
  6. ASPIRIN [Concomitant]
  7. MULTIVITAMIN [Concomitant]
  8. XANAX [Concomitant]
  9. CALCIUM [Concomitant]
  10. POTASSIUM [Concomitant]

REACTIONS (7)
  - ARTERITIS [None]
  - CONSTIPATION [None]
  - INJECTION SITE HAEMORRHAGE [None]
  - MUSCLE FATIGUE [None]
  - MYALGIA [None]
  - NAUSEA [None]
  - PAIN IN EXTREMITY [None]
